FAERS Safety Report 25562208 (Version 2)
Quarter: 2025Q3

REPORT INFORMATION
  Report Type: Report from Study
  Country: CN (occurrence: CN)
  Receive Date: 20250716
  Receipt Date: 20250717
  Transmission Date: 20251020
  Serious: Yes (Hospitalization, Other)
  Sender: SANOFI AVENTIS
  Company Number: CN-SA-SAC20240722001670

PATIENT
  Age: 54 Year
  Sex: Female
  Weight: 70 kg

DRUGS (9)
  1. OXALIPLATIN [Suspect]
     Active Substance: OXALIPLATIN
     Indication: Colorectal cancer metastatic
     Dosage: 85 MG/M2, QOW, CYCLIC (Q2WEEKS ON DAYS 1, 15 AND 29 OF EACH 6-WEEK CYCLE)
     Route: 042
     Dates: start: 20231107, end: 20240202
  2. LEUCOVORIN CALCIUM [Suspect]
     Active Substance: LEUCOVORIN CALCIUM
     Indication: Colorectal cancer metastatic
     Dosage: 400 MG/M2, QOW, Q2WEEKS ON DAYS 1 , 15 AND 29 OF EACH 6-WEEK CYCLE
     Route: 042
     Dates: start: 20231107, end: 20240202
  3. FLUOROURACIL [Suspect]
     Active Substance: FLUOROURACIL
     Indication: Colorectal cancer metastatic
     Dosage: 400 MG/M2, QOW; CYCLIC (Q2 WEEKS ON DAYS 1, 15 AND 29 OF EACH 6-WEEK CYCLE)
     Route: 040
     Dates: start: 20231107, end: 20240202
  4. FLUOROURACIL [Suspect]
     Active Substance: FLUOROURACIL
     Dosage: 2400 MG/M2, QOW, CYCLIC (IV OVER 46-48 HOURS, Q2 WEEKS ON DAYS 1, 15 AND 29 OF EACH 6-WEEK CYCLE)
     Route: 042
     Dates: start: 20231107, end: 20240202
  5. TUCATINIB [Suspect]
     Active Substance: TUCATINIB
     Indication: Colorectal cancer metastatic
     Dosage: 300 MG, BID
     Route: 048
     Dates: start: 20231107, end: 20240214
  6. TRASTUZUMAB [Suspect]
     Active Substance: TRASTUZUMAB
     Indication: Colorectal cancer metastatic
     Route: 042
     Dates: start: 20231107, end: 20240202
  7. TRASTUZUMAB [Suspect]
     Active Substance: TRASTUZUMAB
     Route: 042
     Dates: end: 20240202
  8. LOPERAMIDE [Suspect]
     Active Substance: LOPERAMIDE
     Indication: Prophylaxis against diarrhoea
     Dosage: 4 MG, TID
     Route: 048
     Dates: start: 20231107, end: 20240202
  9. LOPERAMIDE [Suspect]
     Active Substance: LOPERAMIDE
     Route: 048
     Dates: start: 20231107, end: 20240202

REACTIONS (1)
  - Urinary tract infection [Recovered/Resolved]

NARRATIVE: CASE EVENT DATE: 20240216
